FAERS Safety Report 6290469-2 (Version None)
Quarter: 2009Q3

REPORT INFORMATION
  Report Type: 
  Country: None (occurrence: None)
  Receive Date: 20090730
  Receipt Date: 20090429
  Transmission Date: 20100115
  Serious: No
  Sender: FDA-Public Use
  Company Number: US-BRISTOL-MYERS SQUIBB COMPANY-14605661

PATIENT
  Sex: Male
  Weight: 127 kg

DRUGS (4)
  1. COUMADIN [Suspect]
     Indication: ATRIAL FIBRILLATION
     Dosage: 1 DF = 5MG TABS DAILY FOR 6 DAYS AND 7.5MG TABS FOR 1 DAY; DURATION ONE AND HALF YEARS AGO
  2. SOTALOL HCL [Concomitant]
  3. GABAPENTIN [Concomitant]
  4. CHOLESTEROL MEDICATION [Concomitant]

REACTIONS (1)
  - INTERNATIONAL NORMALISED RATIO DECREASED [None]
